FAERS Safety Report 7031926-0 (Version None)
Quarter: 2010Q4

REPORT INFORMATION
  Report Type: 
  Country: None (occurrence: None)
  Receive Date: 20101007
  Receipt Date: 20101001
  Transmission Date: 20110411
  Serious: Yes (Other)
  Sender: FDA-Public Use
  Company Number: CA-ELI_LILLY_AND_COMPANY-CA201010000164

PATIENT
  Sex: Male

DRUGS (3)
  1. HUMULIN 70/30 [Suspect]
  2. HUMALOG [Suspect]
  3. HUMULIN N [Suspect]

REACTIONS (5)
  - BLOOD GLUCOSE FLUCTUATION [None]
  - DRUG DOSE OMISSION [None]
  - MEDICAL DEVICE COMPLICATION [None]
  - PANCREATECTOMY [None]
  - WRONG TECHNIQUE IN DRUG USAGE PROCESS [None]
